FAERS Safety Report 22172842 (Version 15)
Quarter: 2024Q1

REPORT INFORMATION
  Report Type: Spontaneous
  Country: US (occurrence: US)
  Receive Date: 20230404
  Receipt Date: 20240314
  Transmission Date: 20240409
  Serious: Yes (Other)
  Sender: FDA-Public Use
  Company Number: US-VERTEX PHARMACEUTICALS-2023-004815

PATIENT
  Age: 24 Year
  Sex: Male

DRUGS (7)
  1. TRIKAFTA [Suspect]
     Active Substance: ELEXACAFTOR\IVACAFTOR\TEZACAFTOR
     Indication: Cystic fibrosis
     Dosage: UNK FREQUENCY
     Route: 048
     Dates: start: 202201
  2. TRIKAFTA [Suspect]
     Active Substance: ELEXACAFTOR\IVACAFTOR\TEZACAFTOR
     Dosage: FULL DOSE
     Route: 048
  3. TRIKAFTA [Suspect]
     Active Substance: ELEXACAFTOR\IVACAFTOR\TEZACAFTOR
     Dosage: 1 PILL PER DAY
     Route: 048
  4. TRIKAFTA [Suspect]
     Active Substance: ELEXACAFTOR\IVACAFTOR\TEZACAFTOR
     Dosage: RAISED THE DOSE BACK
     Route: 048
  5. TRIKAFTA [Suspect]
     Active Substance: ELEXACAFTOR\IVACAFTOR\TEZACAFTOR
     Dosage: HALF PILLS, QD
     Route: 048
  6. TRIKAFTA [Suspect]
     Active Substance: ELEXACAFTOR\IVACAFTOR\TEZACAFTOR
     Dosage: 1-2 ORANGE PILL IN AM, NO PILL AT NIGHT
     Route: 048
  7. TRIKAFTA [Suspect]
     Active Substance: ELEXACAFTOR\IVACAFTOR\TEZACAFTOR
     Dosage: 1 PILL PER DAY
     Route: 048

REACTIONS (27)
  - Hepatic enzyme increased [Unknown]
  - Pancreatic disorder [Unknown]
  - Fatigue [Not Recovered/Not Resolved]
  - Steatorrhoea [Recovering/Resolving]
  - Constipation [Not Recovered/Not Resolved]
  - Brain fog [Recovering/Resolving]
  - Anxiety [Recovering/Resolving]
  - Insomnia [Unknown]
  - Impaired quality of life [Recovering/Resolving]
  - General physical health deterioration [Unknown]
  - Faecal elastase concentration decreased [Unknown]
  - Speech disorder [Unknown]
  - Nausea [Unknown]
  - Mental impairment [Recovered/Resolved]
  - Dyspepsia [Unknown]
  - Vomiting [Unknown]
  - Dyschezia [Unknown]
  - Migraine [Recovering/Resolving]
  - Mental disorder [Recovering/Resolving]
  - Dysphagia [Unknown]
  - Stress [Recovering/Resolving]
  - Illness [Unknown]
  - Abdominal distension [Recovered/Resolved]
  - Flatulence [Recovering/Resolving]
  - Diarrhoea [Recovering/Resolving]
  - Abdominal pain upper [Recovering/Resolving]
  - Drug ineffective [Unknown]
